FAERS Safety Report 7203822-7 (Version None)
Quarter: 2010Q4

REPORT INFORMATION
  Report Type: 
  Country: None (occurrence: None)
  Receive Date: 20101217
  Receipt Date: 20101202
  Transmission Date: 20110411
  Serious: Yes (Other)
  Sender: FDA-Public Use
  Company Number: ACO_20768_2010

PATIENT
  Age: 26 Year
  Sex: Female

DRUGS (9)
  1. AMPYRA [Suspect]
     Indication: PRODUCT USED FOR UNKNOWN INDICATION
     Dosage: 10 MG, BID, ORAL
     Route: 048
     Dates: start: 20100910, end: 20101101
  2. OXCARBAZEPINE [Concomitant]
  3. KEPPRA [Concomitant]
  4. BACLOFEN [Concomitant]
  5. BETASERON (INTERFEROH BETA-1B) [Concomitant]
  6. ENABLEXE (DARIFENACIN HYDROBROMIDE) [Concomitant]
  7. LEXAPRO [Concomitant]
  8. NAMENDA [Concomitant]
  9. LOESTRIN 1.5/30 [Concomitant]

REACTIONS (1)
  - GRAND MAL CONVULSION [None]
